FAERS Safety Report 20775628 (Version 1)
Quarter: 2022Q2

REPORT INFORMATION
  Report Type: Report from Study
  Country: US (occurrence: US)
  Receive Date: 20220502
  Receipt Date: 20220502
  Transmission Date: 20220721
  Serious: Yes (Hospitalization)
  Sender: FDA-Public Use
  Company Number: US-TEVA-2022-US-2032042

PATIENT
  Age: 12 Year
  Sex: Female
  Weight: 84.1 kg

DRUGS (8)
  1. VINCRISTINE [Suspect]
     Active Substance: VINCRISTINE
     Indication: Acute lymphocytic leukaemia
     Route: 048
     Dates: start: 20220318
  2. VINCRISTINE [Suspect]
     Active Substance: VINCRISTINE
     Route: 042
     Dates: start: 20220225, end: 20220310
  3. METHOTREXATE [Suspect]
     Active Substance: METHOTREXATE
     Indication: Acute lymphocytic leukaemia
     Route: 042
     Dates: start: 20220225, end: 20220310
  4. METHOTREXATE [Suspect]
     Active Substance: METHOTREXATE
     Route: 042
     Dates: start: 20220318
  5. LEUCOVORIN [Suspect]
     Active Substance: LEUCOVORIN
     Indication: Acute lymphocytic leukaemia
     Dosage: 30 MILLIGRAM, Q6H
     Route: 042
     Dates: start: 20220227, end: 20220320
  6. LEUCOVORIN [Suspect]
     Active Substance: LEUCOVORIN
     Dosage: 30 MILLIGRAM, Q6H
     Route: 042
     Dates: start: 20220321
  7. MERCAPTOPURINE [Suspect]
     Active Substance: MERCAPTOPURINE
     Indication: Acute lymphocytic leukaemia
     Dosage: 75 MILLIGRAM DAILY;
     Route: 048
     Dates: start: 20220225, end: 20220310
  8. RUXOLITINIB [Suspect]
     Active Substance: RUXOLITINIB
     Dosage: 95 MILLIGRAM DAILY;
     Route: 048
     Dates: start: 20220225

REACTIONS (4)
  - Febrile neutropenia [Unknown]
  - Pancreatitis [Recovering/Resolving]
  - Dizziness [Recovered/Resolved]
  - Stomatitis [Recovered/Resolved]

NARRATIVE: CASE EVENT DATE: 20220301
